FAERS Safety Report 12842776 (Version 1)
Quarter: 2016Q4

REPORT INFORMATION
  Report Type: Spontaneous
  Country: US (occurrence: US)
  Receive Date: 20161013
  Receipt Date: 20161013
  Transmission Date: 20170207
  Serious: No
  Sender: FDA-Public Use
  Company Number: US-PFIZER INC-2016454132

PATIENT
  Age: 59 Year
  Sex: Female

DRUGS (13)
  1. AMITRIPTYLINE [Concomitant]
     Active Substance: AMITRIPTYLINE
     Dosage: 25 MG, DAILY (AT BEDTIME)
     Route: 048
  2. EXCEDRIN EXTRA STRENGTH [Concomitant]
     Active Substance: ACETAMINOPHEN\ASPIRIN\CAFFEINE
     Dosage: 2 DF, AS NEEDED (ACETYLSALICYLIC ACID: 250MG/ PARACETAMOL: 250MG/ CAFFEINE 65 MG, (2 TABLETS))
     Route: 048
  3. LORAZEPAM. [Concomitant]
     Active Substance: LORAZEPAM
     Indication: SLEEP DISORDER
  4. NAPROXEN SODIUM. [Concomitant]
     Active Substance: NAPROXEN SODIUM
     Dosage: 440 MG, AS NEEDED (2 TABLETS)
     Route: 048
  5. OSTEO BI-FLEX [Concomitant]
     Active Substance: CHONDROITIN SULFATE A\GLUCOSAMINE
     Dosage: UNK, DAILY (CHONDROITIN SULFATE: 200MG/ GLUCOSAMINE HYDROCHLORIDE 250 MG, AT BEDTIME)
  6. CHLORPHENIRAMINE W/HYDROCODONE [Concomitant]
     Dosage: 5 ML, 2X/DAY (CHLORPHENIRAMINE-HYDROCODONE 8-10 MG/5 ML EVERY TWELVE HOURS)
     Route: 048
  7. XALKORI [Concomitant]
     Active Substance: CRIZOTINIB
     Dosage: 250 MG, 2X/DAY
     Route: 048
  8. LORAZEPAM. [Concomitant]
     Active Substance: LORAZEPAM
     Indication: NAUSEA
     Dosage: 0.5 MG, AS NEEDED (EVERY FOUR HOURS)
     Route: 048
  9. CRIZOTINIB [Suspect]
     Active Substance: CRIZOTINIB
     Indication: LUNG ADENOCARCINOMA STAGE IV
     Dosage: UNK, 2X/DAY (250)
     Route: 048
     Dates: start: 20150515
  10. BIOTIN [Concomitant]
     Active Substance: BIOTIN
     Dosage: UNK UNK, 1X/DAY
  11. SUMATRIPTAN. [Concomitant]
     Active Substance: SUMATRIPTAN
     Indication: MIGRAINE
     Dosage: UNK ( (ACTUATION SPRAY, NON-AEROSOL, 2 SPRAY(S) IN EACH NOSTRIL, ONCE MAY REPEAT ONCE IN THE SAME)
     Route: 045
  12. HYDROCODONE/ACETAMINOPHEN [Concomitant]
     Active Substance: ACETAMINOPHEN\HYDROCODONE
     Dosage: UNK, AS NEEDED (HYDROCODONE BITARTRATE: 10 MG/ PARACETAMOL 325 MG, 1 OR 2 TABLET EVERY 4 TO 6 HOURS)
     Route: 048
  13. SUMATRIPTAN SUCCINATE. [Concomitant]
     Active Substance: SUMATRIPTAN SUCCINATE
     Dosage: 50 MG, AS NEEDED
     Route: 048

REACTIONS (1)
  - Neoplasm progression [Unknown]
